FAERS Safety Report 25436269 (Version 1)
Quarter: 2025Q2

REPORT INFORMATION
  Report Type: Spontaneous
  Country: DE (occurrence: DE)
  Receive Date: 20250614
  Receipt Date: 20250614
  Transmission Date: 20250717
  Serious: Yes (Other)
  Sender: MACLEODS
  Company Number: DE-MLMSERVICE-20250528-PI522240-00246-1

PATIENT

DRUGS (3)
  1. OLANZAPINE [Suspect]
     Active Substance: OLANZAPINE
     Indication: Schizophrenia
     Route: 030
     Dates: start: 202106
  2. OLANZAPINE [Suspect]
     Active Substance: OLANZAPINE
     Route: 030
  3. OLANZAPINE [Suspect]
     Active Substance: OLANZAPINE
     Dosage: 57TH ADMINISTRATION IN APR 2024
     Route: 030

REACTIONS (1)
  - Post-injection delirium sedation syndrome [Recovered/Resolved]

NARRATIVE: CASE EVENT DATE: 20240401
